FAERS Safety Report 18882818 (Version 1)
Quarter: 2021Q1

REPORT INFORMATION
  Report Type: Spontaneous
  Country: CA (occurrence: CA)
  Receive Date: 20210212
  Receipt Date: 20210212
  Transmission Date: 20210420
  Serious: Yes (Other)
  Sender: FDA-Public Use
  Company Number: CA-LUPIN PHARMACEUTICALS INC.-2021-01562

PATIENT
  Age: 4 Day
  Sex: Female

DRUGS (3)
  1. LEVETIRACETAM. [Suspect]
     Active Substance: LEVETIRACETAM
     Dosage: 15 MILLIGRAM/KILOGRAM, BID, MAINTENANCE DOSE INCREASED
     Route: 042
  2. LEVETIRACETAM. [Suspect]
     Active Substance: LEVETIRACETAM
     Indication: NEONATAL SEIZURE
     Dosage: 20 MILLIGRAM/KILOGRAM, LOADING DOSE
     Route: 042
  3. LEVETIRACETAM. [Suspect]
     Active Substance: LEVETIRACETAM
     Dosage: 10 MILLIGRAM/KILOGRAM, BID, MAINTENANCE DOSE
     Route: 042

REACTIONS (1)
  - Drug ineffective [Unknown]
